FAERS Safety Report 7867771 (Version 7)
Quarter: 2013Q2

REPORT INFORMATION
  Report Type: Spontaneous
  Country: US (occurrence: US)
  Receive Date: 20110323
  Receipt Date: 20130517
  Transmission Date: 20140414
  Serious: Yes (Hospitalization, Other)
  Sender: FDA-Public Use
  Company Number: US-ROCHE-766855

PATIENT
  Age: 33 Year
  Sex: Female
  Weight: 61.2 kg

DRUGS (1)
  1. ACCUTANE [Suspect]
     Indication: ACNE CYSTIC
     Route: 065
     Dates: start: 199601, end: 199607

REACTIONS (6)
  - Small intestinal obstruction [Recovering/Resolving]
  - Crohn^s disease [Unknown]
  - Colitis [Unknown]
  - Depression [Unknown]
  - Injury [Unknown]
  - Gastrointestinal neoplasm [Unknown]
